FAERS Safety Report 13051355 (Version 1)
Quarter: 2016Q4

REPORT INFORMATION
  Report Type: Spontaneous
  Country: US (occurrence: US)
  Receive Date: 20161221
  Receipt Date: 20161221
  Transmission Date: 20170207
  Serious: Yes (Other)
  Sender: FDA-Public Use
  Company Number: None

PATIENT
  Age: 69 Year
  Sex: Female
  Weight: 58.5 kg

DRUGS (6)
  1. BYSTOLIC [Concomitant]
     Active Substance: NEBIVOLOL HYDROCHLORIDE
  2. PRAMIPEXOLE. [Concomitant]
     Active Substance: PRAMIPEXOLE
  3. LEVAQUIN [Suspect]
     Active Substance: LEVOFLOXACIN
     Indication: BRONCHITIS
     Route: 048
     Dates: start: 20161207, end: 20161210
  4. FUROSEMIDE. [Concomitant]
     Active Substance: FUROSEMIDE
  5. LISINOPRIL. [Concomitant]
     Active Substance: LISINOPRIL
  6. METFORMIN [Concomitant]
     Active Substance: METFORMIN HYDROCHLORIDE

REACTIONS (8)
  - Muscular weakness [None]
  - Ligament pain [None]
  - Gait disturbance [None]
  - Drug interaction [None]
  - Rheumatoid arthritis [None]
  - Myalgia [None]
  - Pain in extremity [None]
  - Dysstasia [None]

NARRATIVE: CASE EVENT DATE: 20161209
